FAERS Safety Report 7175988-9 (Version None)
Quarter: 2010Q4

REPORT INFORMATION
  Report Type: 
  Country: None (occurrence: None)
  Receive Date: 20101220
  Receipt Date: 20101210
  Transmission Date: 20110411
  Serious: Yes (Other)
  Sender: FDA-Public Use
  Company Number: 2005BI015699

PATIENT
  Age: 57 Year
  Sex: Female
  Weight: 83 kg

DRUGS (6)
  1. AVONEX [Suspect]
     Indication: MULTIPLE SCLEROSIS
     Route: 030
     Dates: start: 19980101, end: 20030101
  2. AVONEX [Suspect]
     Route: 030
     Dates: start: 20030101, end: 20060101
  3. AVONEX [Suspect]
     Route: 030
     Dates: start: 20070201
  4. LEXAPRO [Concomitant]
  5. UNKNOWN MEDICATIONS [Concomitant]
  6. UNKNOWN MEDICATIONS [Concomitant]

REACTIONS (10)
  - BLOOD CHOLESTEROL INCREASED [None]
  - CONTUSION [None]
  - COUGH [None]
  - DRUG HYPERSENSITIVITY [None]
  - FALL [None]
  - MOBILITY DECREASED [None]
  - NERVOUSNESS [None]
  - OROPHARYNGEAL PAIN [None]
  - TUBERCULOSIS [None]
  - WEIGHT INCREASED [None]
